FAERS Safety Report 12484328 (Version 4)
Quarter: 2016Q4

REPORT INFORMATION
  Report Type: Spontaneous
  Country: US (occurrence: US)
  Receive Date: 20160621
  Receipt Date: 20161115
  Transmission Date: 20170207
  Serious: No
  Sender: FDA-Public Use
  Company Number: PHEH2016US015407

PATIENT
  Age: 61 Year
  Sex: Male

DRUGS (3)
  1. MEKINIST [Suspect]
     Active Substance: TRAMETINIB DIMETHYL SULFOXIDE
     Indication: BRONCHIAL CARCINOMA
     Dosage: 1 MG, QD (CONCENTRATION: 0.5 MG)
     Route: 048
     Dates: start: 20160630
  2. MEKINIST [Suspect]
     Active Substance: TRAMETINIB DIMETHYL SULFOXIDE
     Indication: MALIGNANT MELANOMA
     Dosage: 2 MG, QD (CONCENTRATION: 2 MG)
     Route: 048
     Dates: start: 20160524
  3. MEKINIST [Suspect]
     Active Substance: TRAMETINIB DIMETHYL SULFOXIDE
     Dosage: 1 MG, QD (2 TABLETS) (CONCENTRATION: 0.5 MG)
     Route: 048

REACTIONS (8)
  - Local swelling [Unknown]
  - Influenza like illness [Unknown]
  - Dysphonia [Unknown]
  - Rhinorrhoea [Unknown]
  - Nail infection [Unknown]
  - Blood pressure increased [Unknown]
  - Fatigue [Unknown]
  - Acne [Unknown]

NARRATIVE: CASE EVENT DATE: 20160530
